FAERS Safety Report 7642698-0 (Version None)
Quarter: 2011Q3

REPORT INFORMATION
  Report Type: 
  Country: None (occurrence: None)
  Receive Date: 20110728
  Receipt Date: 20110721
  Transmission Date: 20111222
  Serious: Yes (Hospitalization, Other)
  Sender: FDA-Public Use
  Company Number: US-PFIZER INC-2011170587

PATIENT
  Sex: Male

DRUGS (1)
  1. LIPITOR [Suspect]
     Indication: LIPID METABOLISM DISORDER
     Dosage: 40 MG, UNK
     Dates: end: 20110101

REACTIONS (2)
  - RHABDOMYOLYSIS [None]
  - MYALGIA [None]
